FAERS Safety Report 4948229-8 (Version None)
Quarter: 2006Q1

REPORT INFORMATION
  Report Type: 
  Country: None (occurrence: None)
  Receive Date: 20060314
  Receipt Date: 20060306
  Transmission Date: 20060701
  Serious: No
  Sender: FDA-Public Use
  Company Number: US-2005-018913

PATIENT
  Age: 33 Year
  Sex: Male
  Weight: 79.4 kg

DRUGS (2)
  1. BETASERON [Suspect]
     Indication: MULTIPLE SCLEROSIS
     Dosage: SUBCUTANEOUS
     Route: 058
  2. NOVANTRONE [Suspect]
     Indication: MULTIPLE SCLEROSIS
     Dosage: 5 MG/M2, Q3MONTHS, INTRAVENOUS
     Route: 042
     Dates: start: 20030101

REACTIONS (2)
  - DYSPNOEA [None]
  - MALAISE [None]
